FAERS Safety Report 11788730 (Version 1)
Quarter: 2015Q4

REPORT INFORMATION
  Report Type: Spontaneous
  Country: US (occurrence: None)
  Receive Date: 20151130
  Receipt Date: 20151130
  Transmission Date: 20160305
  Serious: Yes (Hospitalization, Disabling)
  Sender: FDA-Public Use
  Company Number: None

PATIENT
  Age: 20 Year
  Sex: Male
  Weight: 86.18 kg

DRUGS (2)
  1. MEFLOQUIN LARIUM [Suspect]
     Active Substance: MEFLOQUINE
     Indication: MALARIA PROPHYLAXIS
     Dosage: 1 PILL
     Route: 048
     Dates: start: 20091201, end: 20100701
  2. DEXTROAMPHETAMINE. [Concomitant]
     Active Substance: DEXTROAMPHETAMINE

REACTIONS (7)
  - Insomnia [None]
  - Sleep paralysis [None]
  - Abnormal dreams [None]
  - Anger [None]
  - Mood swings [None]
  - Hallucination [None]
  - Therapy cessation [None]

NARRATIVE: CASE EVENT DATE: 20091201
